FAERS Safety Report 17651894 (Version 2)
Quarter: 2020Q2

REPORT INFORMATION
  Report Type: Spontaneous
  Country: FR (occurrence: FR)
  Receive Date: 20200409
  Receipt Date: 20200509
  Transmission Date: 20200713
  Serious: Yes (Hospitalization)
  Sender: FDA-Public Use
  Company Number: FR-TEVA-2020-FR-1221645

PATIENT
  Age: 59 Year
  Sex: Female

DRUGS (6)
  1. LUMIRELAX 500 MG, COMPRIME [Suspect]
     Active Substance: METHOCARBAMOL
     Indication: PAIN
     Dosage: UNKNOWN
     Route: 048
     Dates: start: 20200304, end: 20200310
  2. VENLAFAXINE [Concomitant]
     Active Substance: VENLAFAXINE HYDROCHLORIDE
     Dosage: 150 MG
     Route: 048
  3. ACTISKENAN 5 MG, GELULE [Concomitant]
     Active Substance: MORPHINE SULFATE
     Dosage: 1 DF PER 4 HOURS
     Route: 048
     Dates: start: 20200309, end: 20200313
  4. SERESTA 50 MG, COMPRIME SECABLE [Concomitant]
     Active Substance: OXAZEPAM
     Dosage: 1 DF
     Route: 048
  5. DICLOFENAC [Suspect]
     Active Substance: DICLOFENAC
     Indication: PAIN
     Dosage: UNKNOWN
     Route: 048
     Dates: start: 20200302, end: 20200310
  6. PARACETAMOL [Suspect]
     Active Substance: ACETAMINOPHEN
     Indication: PAIN
     Dosage: UNKNOWN
     Route: 048
     Dates: start: 20200304, end: 20200310

REACTIONS (2)
  - Cholestasis [Recovering/Resolving]
  - Hepatocellular injury [Recovering/Resolving]

NARRATIVE: CASE EVENT DATE: 20200310
